FAERS Safety Report 20979012 (Version 1)
Quarter: 2022Q2

REPORT INFORMATION
  Report Type: Spontaneous
  Country: JP (occurrence: JP)
  Receive Date: 20220619
  Receipt Date: 20220619
  Transmission Date: 20220721
  Serious: Yes (Hospitalization, Other)
  Sender: FDA-Public Use
  Company Number: JP-BRISTOL-MYERS SQUIBB COMPANY-2022-056843

PATIENT
  Age: 79 Year
  Sex: Female

DRUGS (4)
  1. IPILIMUMAB [Suspect]
     Active Substance: IPILIMUMAB
     Indication: Renal cell carcinoma
  2. OPDIVO [Suspect]
     Active Substance: NIVOLUMAB
     Indication: Renal cell carcinoma
  3. OPDIVO [Suspect]
     Active Substance: NIVOLUMAB
  4. CABOMETYX [Suspect]
     Active Substance: CABOZANTINIB S-MALATE
     Indication: Product used for unknown indication

REACTIONS (11)
  - Immune-mediated myocarditis [Unknown]
  - Addison^s disease [Unknown]
  - Malignant neoplasm progression [Unknown]
  - Hemiplegia [Unknown]
  - Dysarthria [Unknown]
  - Steroid withdrawal syndrome [Unknown]
  - Pleural effusion [Unknown]
  - Adrenocorticotropic hormone deficiency [Unknown]
  - Depression [Unknown]
  - Decreased appetite [Unknown]
  - Malaise [Unknown]
